FAERS Safety Report 4668234-9 (Version None)
Quarter: 2005Q2

REPORT INFORMATION
  Report Type: 
  Country: None (occurrence: None)
  Receive Date: 20050523
  Receipt Date: 20050224
  Transmission Date: 20051028
  Serious: Yes (Other)
  Sender: FDA-Public Use
  Company Number: PHEH2005US02459

PATIENT
  Age: 41 Year
  Sex: Female
  Weight: 84 kg

DRUGS (11)
  1. ZOMETA [Suspect]
     Indication: METASTASES TO BONE
     Dosage: 4 MG IN 0.9% NS, QMO
     Dates: start: 20020419, end: 20040908
  2. LORTAB [Concomitant]
  3. NEXIUM [Concomitant]
  4. WELLBUTRIN SR [Concomitant]
  5. OXYCONTIN [Concomitant]
  6. GLUCOPHAGE [Concomitant]
  7. FASLODEX [Concomitant]
  8. HYZAAR [Concomitant]
  9. LIPITOR [Concomitant]
  10. NEURONTIN [Concomitant]
  11. AREDIA [Suspect]

REACTIONS (2)
  - JAW DISORDER [None]
  - OSTEONECROSIS [None]
